FAERS Safety Report 7028751-3 (Version None)
Quarter: 2010Q4

REPORT INFORMATION
  Report Type: 
  Country: None (occurrence: None)
  Receive Date: 20101004
  Receipt Date: 20101004
  Transmission Date: 20110411
  Serious: No
  Sender: FDA-Public Use
  Company Number: None

PATIENT
  Age: 61 Year
  Sex: Male
  Weight: 113.3993 kg

DRUGS (1)
  1. METALAXALONE 900 MG GENERIC FOR SKELAXIN, SANDOZ [Suspect]
     Indication: BACK PAIN
     Dosage: 1 TABLET EVERY 8 HOURS PO
     Route: 048
     Dates: start: 20100903, end: 20100906

REACTIONS (4)
  - BLOOD PRESSURE INCREASED [None]
  - NAUSEA [None]
  - PAIN IN EXTREMITY [None]
  - PERIPHERAL VASCULAR DISORDER [None]
